FAERS Safety Report 5796650-0 (Version None)
Quarter: 2008Q2

REPORT INFORMATION
  Report Type: 
  Country: None (occurrence: None)
  Receive Date: 20080630
  Receipt Date: 20080630
  Transmission Date: 20081010
  Serious: Yes (Hospitalization)
  Sender: FDA-Public Use
  Company Number: None

PATIENT
  Age: 47 Year
  Sex: Female

DRUGS (1)
  1. PHENYTOIN [Suspect]
     Indication: CONVULSION
     Dosage: 400 MG EVERY DAY PO
     Route: 048
     Dates: start: 20060601, end: 20080508

REACTIONS (3)
  - ATAXIA [None]
  - CONFUSIONAL STATE [None]
  - HYPOAESTHESIA [None]
